FAERS Safety Report 12986985 (Version 4)
Quarter: 2017Q1

REPORT INFORMATION
  Report Type: Spontaneous
  Country: US (occurrence: US)
  Receive Date: 20161130
  Receipt Date: 20170117
  Transmission Date: 20170428
  Serious: No
  Sender: FDA-Public Use
  Company Number: US-PFIZER INC-2016554383

PATIENT
  Age: 59 Year
  Sex: Female

DRUGS (4)
  1. XELJANZ XR [Suspect]
     Active Substance: TOFACITINIB CITRATE
     Indication: RHEUMATOID ARTHRITIS
     Dosage: 11 MG, 1X/DAY
     Dates: start: 20161111
  2. PREDNISONE. [Concomitant]
     Active Substance: PREDNISONE
     Indication: INFLAMMATION
     Dosage: 1 DF, DAILY
     Dates: start: 2009
  3. XELJANZ XR [Suspect]
     Active Substance: TOFACITINIB CITRATE
     Dosage: 11 MG, DAILY
     Route: 048
     Dates: start: 201611
  4. METHOTREXATE. [Concomitant]
     Active Substance: METHOTREXATE
     Indication: PAIN
     Dosage: 2.5 MG, UNK (TAKE 4 OF MONDAY)
     Dates: start: 2009

REACTIONS (1)
  - Condition aggravated [Unknown]
